FAERS Safety Report 19196357 (Version 9)
Quarter: 2021Q2

REPORT INFORMATION
  Report Type: Report from Study
  Country: BR (occurrence: BR)
  Receive Date: 20210429
  Receipt Date: 20210629
  Transmission Date: 20210717
  Serious: Yes (Death, Life-Threatening, Hospitalization, Disabling)
  Sender: FDA-Public Use
  Company Number: NVSC2021BR077379

PATIENT
  Age: 32 Year
  Sex: Male
  Weight: 46.5 kg

DRUGS (24)
  1. IBRUTINIB [Suspect]
     Active Substance: IBRUTINIB
     Indication: NON-HODGKIN^S LYMPHOMA
     Dosage: 7280 MG, QD
     Route: 048
     Dates: start: 20210325
  2. RITUXIMAB. [Suspect]
     Active Substance: RITUXIMAB
     Indication: NON-HODGKIN^S LYMPHOMA
     Dosage: 588.75 MG, ONCE/SINGLE
     Route: 042
     Dates: start: 20210126
  3. MEROPENEM. [Concomitant]
     Active Substance: MEROPENEM
     Indication: PYREXIA
     Dosage: UNK
     Route: 065
     Dates: start: 20210418, end: 20210423
  4. QUETIAPINE. [Concomitant]
     Active Substance: QUETIAPINE
     Indication: INSOMNIA
     Dosage: UNK
     Route: 065
     Dates: start: 20210415, end: 20210501
  5. PREDNISONE. [Concomitant]
     Active Substance: PREDNISONE
     Indication: ABDOMINAL PAIN
     Dosage: UNK
     Route: 065
     Dates: start: 20210402, end: 20210403
  6. PREDNISONE. [Concomitant]
     Active Substance: PREDNISONE
     Dosage: UNK
     Route: 065
     Dates: start: 20210403, end: 20210404
  7. TRANEXAMIC ACID. [Concomitant]
     Active Substance: TRANEXAMIC ACID
     Indication: EPISTAXIS
     Dosage: UNK
     Route: 065
     Dates: start: 20210430, end: 20210503
  8. TEICOPLANIN [Concomitant]
     Active Substance: TEICOPLANIN
     Dosage: UNK
     Route: 065
     Dates: start: 20210420, end: 20210423
  9. METHOTREXATE. [Concomitant]
     Active Substance: METHOTREXATE
     Indication: CHEMOTHERAPY
     Dosage: 2210 MG, ONCE/SINGLE
     Route: 065
     Dates: start: 20210408, end: 20210408
  10. DEXAMETHASONE. [Suspect]
     Active Substance: DEXAMETHASONE
     Indication: NON-HODGKIN^S LYMPHOMA
     Dosage: 160 MG, QD
     Route: 042
     Dates: start: 20210212
  11. SULFAMETHOXAZOLE AND TRIMETHOPRIM [Concomitant]
     Active Substance: SULFAMETHOXAZOLE\TRIMETHOPRIM
     Indication: INFECTION PROPHYLAXIS
     Dosage: UNK
     Route: 065
     Dates: start: 20200811, end: 20210404
  12. CYTARABINE. [Suspect]
     Active Substance: CYTARABINE
     Indication: B-CELL LYMPHOMA
     Dosage: 5840 MG, BID
     Route: 042
     Dates: start: 20210213
  13. MESNA. [Suspect]
     Active Substance: MESNA
     Indication: NON-HODGKIN^S LYMPHOMA
     Dosage: 7.85 MG, CONT INFUSION 24H
     Route: 042
     Dates: start: 20210127
  14. MEROPENEM. [Concomitant]
     Active Substance: MEROPENEM
     Indication: SEPSIS
     Dosage: UNK
     Route: 065
     Dates: start: 20210501, end: 20210503
  15. FLUDARABINE [Concomitant]
     Active Substance: FLUDARABINE PHOSPHATE
     Indication: CHEMOTHERAPY
     Dosage: 37.25 MG, ONCE/SINGLE
     Route: 065
     Dates: start: 20210318, end: 20210318
  16. ADRENALINE [Concomitant]
     Active Substance: EPINEPHRINE
     Indication: EPISTAXIS
     Dosage: UNK
     Route: 065
     Dates: start: 20210430, end: 20210430
  17. CARBOPLATIN. [Suspect]
     Active Substance: CARBOPLATIN
     Indication: NON-HODGKIN^S LYMPHOMA
     Dosage: 750 MG, ONCE/SINGLE
     Route: 042
     Dates: start: 20210127
  18. ETOPOSIDE. [Suspect]
     Active Substance: ETOPOSIDE
     Indication: NON-HODGKIN^S LYMPHOMA
     Dosage: 157 MG, ONCE/SINGLE
     Route: 042
     Dates: start: 20210126
  19. TEICOPLANIN [Concomitant]
     Active Substance: TEICOPLANIN
     Indication: PYREXIA
     Dosage: UNK
     Route: 065
     Dates: start: 20210418, end: 20210420
  20. METOTREXATE [Suspect]
     Active Substance: METHOTREXATE SODIUM
     Indication: PRODUCT USED FOR UNKNOWN INDICATION
     Route: 065
  21. MORFINE [Concomitant]
     Active Substance: MORPHINE
     Indication: ABDOMINAL PAIN
     Dosage: UNK
     Route: 065
     Dates: start: 20210402, end: 20210404
  22. IFOSFAMIDE. [Suspect]
     Active Substance: IFOSFAMIDE
     Indication: NON-HODGKIN^S LYMPHOMA
     Dosage: 7850 MG, CONTINUOUS INFUSION 24H
     Route: 042
     Dates: start: 20210127
  23. CISPLATIN. [Suspect]
     Active Substance: CISPLATIN
     Indication: NON-HODGKIN^S LYMPHOMA
     Dosage: 146 MG, CONT INFUSION 24H
     Route: 042
     Dates: start: 20210212
  24. CYCLOPHOSPHAMIDE. [Concomitant]
     Active Substance: CYCLOPHOSPHAMIDE
     Indication: CHEMOTHERAPY
     Dosage: 372.5 MG, ONCE/SINGLE
     Route: 065
     Dates: start: 20210318, end: 20210318

REACTIONS (9)
  - Sepsis [Not Recovered/Not Resolved]
  - Platelet count decreased [Not Recovered/Not Resolved]
  - Abdominal pain [Not Recovered/Not Resolved]
  - Urinary tract obstruction [Recovered/Resolved]
  - Respiratory failure [Not Recovered/Not Resolved]
  - Neutrophil count decreased [Recovered/Resolved]
  - Spinal cord compression [Not Recovered/Not Resolved]
  - Septic shock [Fatal]
  - Urinary tract infection [Recovered/Resolved]

NARRATIVE: CASE EVENT DATE: 20210404
